FAERS Safety Report 8417848-9 (Version None)
Quarter: 2012Q2

REPORT INFORMATION
  Report Type: 
  Country: None (occurrence: None)
  Receive Date: 20120607
  Receipt Date: 20120603
  Transmission Date: 20120825
  Serious: No
  Sender: FDA-Public Use
  Company Number: US-PFIZER INC-2012133085

PATIENT
  Age: 17 Month
  Sex: Male
  Weight: 13.605 kg

DRUGS (1)
  1. PEDIATRIC ADVIL [Suspect]
     Indication: PYREXIA
     Dosage: UNK

REACTIONS (1)
  - RASH [None]
